FAERS Safety Report 23850436 (Version 1)
Quarter: 2024Q2

REPORT INFORMATION
  Report Type: Other
  Country: US (occurrence: None)
  Receive Date: 20240513
  Receipt Date: 20240513
  Transmission Date: 20240716
  Serious: Yes (Hospitalization, Other)
  Sender: FDA-Public Use
  Company Number: US-ROCHE-3556353

PATIENT
  Age: 63 Year
  Sex: Male
  Weight: 63.106 kg

DRUGS (2)
  1. OCREVUS [Suspect]
     Active Substance: OCRELIZUMAB
     Indication: Multiple sclerosis
     Dosage: DATE OF TREATMENT: 29/MAR/2023, 12/APR/2023,12/OCT/2023, 29/APR/2024.
     Route: 042
     Dates: start: 2023
  2. CARBAMAZEPINE [Concomitant]
     Active Substance: CARBAMAZEPINE
     Indication: Trigeminal neuralgia
     Route: 048
     Dates: start: 2021

REACTIONS (8)
  - Dysstasia [Recovered/Resolved]
  - Gait disturbance [Recovered/Resolved]
  - Fall [Unknown]
  - Hip fracture [Not Recovered/Not Resolved]
  - Contusion [Recovered/Resolved]
  - COVID-19 [Recovered/Resolved]
  - Contusion [Unknown]
  - Skin laceration [Recovered/Resolved]

NARRATIVE: CASE EVENT DATE: 20231027
